FAERS Safety Report 5146629-7 (Version None)
Quarter: 2006Q4

REPORT INFORMATION
  Report Type: 
  Country: None (occurrence: None)
  Receive Date: 20061109
  Receipt Date: 20061019
  Transmission Date: 20070319
  Serious: Yes (Hospitalization, Other)
  Sender: FDA-Public Use
  Company Number: PHEH2006US13218

PATIENT
  Age: 70 Year
  Sex: Female

DRUGS (7)
  1. PROCRIT                            /00909301/ [Concomitant]
     Dosage: 20000 U, 3 TIMES A WEEK
  2. NEUPOGEN [Concomitant]
     Dosage: 480 UG, QW
  3. LISINOPRIL [Concomitant]
     Dosage: 10 MG, QD
  4. ALLOPURINOL [Concomitant]
     Dosage: 300 MG, QD
  5. FUROSEMIDE [Concomitant]
     Dosage: 40 MG, QD
  6. K-TAB [Concomitant]
     Dosage: 10 MEQ, QD
  7. EXJADE [Suspect]
     Dosage: 1500 MG, QD
     Route: 048
     Dates: start: 20060801

REACTIONS (15)
  - ANAEMIA [None]
  - BLOOD CREATININE INCREASED [None]
  - BLOOD UREA INCREASED [None]
  - COLD SWEAT [None]
  - DIARRHOEA [None]
  - DIZZINESS [None]
  - DUODENITIS [None]
  - FAECES DISCOLOURED [None]
  - GASTRIC ULCER [None]
  - GASTRITIS EROSIVE [None]
  - GASTROINTESTINAL HAEMORRHAGE [None]
  - HAEMATOCRIT DECREASED [None]
  - HAEMOGLOBIN DECREASED [None]
  - OEDEMA PERIPHERAL [None]
  - OESOPHAGOGASTRODUODENOSCOPY [None]
